FAERS Safety Report 6287978-9 (Version None)
Quarter: 2009Q3

REPORT INFORMATION
  Report Type: 
  Country: None (occurrence: None)
  Receive Date: 20090729
  Receipt Date: 20090727
  Transmission Date: 20100115
  Serious: Yes (Hospitalization)
  Sender: FDA-Public Use
  Company Number: US-ASTRAZENECA-2009UW21249

PATIENT
  Age: 85 Year
  Sex: Male
  Weight: 67.1 kg

DRUGS (5)
  1. TOPROL-XL [Suspect]
     Route: 048
     Dates: start: 20060101
  2. CRESTOR [Concomitant]
     Indication: BLOOD CHOLESTEROL INCREASED
     Route: 048
     Dates: start: 20040101
  3. FLOMAX [Concomitant]
     Indication: URINARY HESITATION
     Route: 048
     Dates: start: 20050101
  4. LEVOTHROID [Concomitant]
     Indication: HYPOTHYROIDISM
     Route: 048
     Dates: start: 20050101
  5. AMBIEN [Concomitant]
     Dates: start: 20090201

REACTIONS (3)
  - DEHYDRATION [None]
  - DIZZINESS [None]
  - INSOMNIA [None]
